FAERS Safety Report 26208694 (Version 1)
Quarter: 2025Q4

REPORT INFORMATION
  Report Type: Spontaneous
  Country: US (occurrence: US)
  Receive Date: 20251229
  Receipt Date: 20251229
  Transmission Date: 20260117
  Serious: No
  Sender: GALPHARM INTERNATIONAL
  Company Number: US-PERRIGO-25US008621

PATIENT
  Sex: Female

DRUGS (2)
  1. TIOCONAZOLE [Suspect]
     Active Substance: TIOCONAZOLE
     Indication: Product used for unknown indication
     Dosage: 300 MG, SINGLE
     Route: 067
     Dates: start: 202505, end: 202505
  2. LACTOBACILLUS ACIDOPHILUS [Concomitant]
     Active Substance: LACTOBACILLUS ACIDOPHILUS
     Indication: Probiotic therapy
     Dosage: UNK
     Route: 065

REACTIONS (10)
  - Foreign body in reproductive tract [Recovered/Resolved]
  - Bacterial vulvovaginitis [Unknown]
  - Hypersensitivity [Unknown]
  - Genital blister [Unknown]
  - Nausea [Recovered/Resolved]
  - Pain [Unknown]
  - Vulvovaginal erythema [Unknown]
  - Vulvovaginal burning sensation [Unknown]
  - Vulvovaginal pruritus [Unknown]
  - Wrong technique in product usage process [Recovered/Resolved]

NARRATIVE: CASE EVENT DATE: 20250101
